FAERS Safety Report 20945033 (Version 1)
Quarter: 2022Q2

REPORT INFORMATION
  Report Type: Spontaneous
  Country: US (occurrence: US)
  Receive Date: 20220610
  Receipt Date: 20220610
  Transmission Date: 20220721
  Serious: No
  Sender: FDA-Public Use
  Company Number: US-APELLIS-01242

PATIENT
  Sex: Female

DRUGS (21)
  1. EMPAVELI [Suspect]
     Active Substance: PEGCETACOPLAN
     Indication: Paroxysmal nocturnal haemoglobinuria
     Dosage: 1080 MG 0.5 WEEKS
     Route: 058
  2. EMPAVELI [Suspect]
     Active Substance: PEGCETACOPLAN
     Dosage: 1080 MG 0.5 WEEKS
     Route: 058
  3. EMPAVELI [Suspect]
     Active Substance: PEGCETACOPLAN
     Dosage: 1080 MG 0.5 WEEKS
     Route: 058
  4. ACETAMINOPHEN [Concomitant]
     Active Substance: ACETAMINOPHEN
     Indication: Product used for unknown indication
  5. LORAZEPAM [Concomitant]
     Active Substance: LORAZEPAM
     Indication: Product used for unknown indication
  6. MORPHINE [Concomitant]
     Active Substance: MORPHINE
  7. VITAMIN D3 [Concomitant]
     Active Substance: CHOLECALCIFEROL
     Indication: Product used for unknown indication
  8. DIPHENHYDRAMINE [Concomitant]
     Active Substance: DIPHENHYDRAMINE
     Indication: Product used for unknown indication
  9. FAMCICLOVIR [Concomitant]
     Active Substance: FAMCICLOVIR
     Indication: Product used for unknown indication
  10. HYDROXYZINE [Concomitant]
     Active Substance: HYDROXYZINE HYDROCHLORIDE
     Indication: Product used for unknown indication
  11. PEPCID [Concomitant]
     Active Substance: FAMOTIDINE
     Indication: Product used for unknown indication
  12. CELEXA [Concomitant]
     Active Substance: CITALOPRAM HYDROBROMIDE
     Indication: Product used for unknown indication
  13. CRANBERRY [Concomitant]
     Active Substance: CRANBERRY
     Indication: Product used for unknown indication
  14. FISH OIL [Concomitant]
     Active Substance: FISH OIL
     Indication: Product used for unknown indication
  15. FOLIC ACID [Concomitant]
     Active Substance: FOLIC ACID
     Indication: Product used for unknown indication
  16. IBUPROFEN [Concomitant]
     Active Substance: IBUPROFEN
     Indication: Product used for unknown indication
  17. PANTOPRAZOLE [Concomitant]
     Active Substance: PANTOPRAZOLE
  18. ULTOMIRIS [Concomitant]
     Active Substance: RAVULIZUMAB-CWVZ
     Indication: Product used for unknown indication
  19. VITAMIN B12 [Concomitant]
     Active Substance: CYANOCOBALAMIN
  20. XARELTO [Concomitant]
     Active Substance: RIVAROXABAN
     Indication: Product used for unknown indication
  21. LAMOTRIGINE [Concomitant]
     Active Substance: LAMOTRIGINE
     Indication: Product used for unknown indication

REACTIONS (13)
  - Infusion site pain [Not Recovered/Not Resolved]
  - Pruritus [Not Recovered/Not Resolved]
  - Sensitive skin [Unknown]
  - Infusion site scar [Not Recovered/Not Resolved]
  - Arthralgia [Unknown]
  - Abdominal pain [Recovering/Resolving]
  - COVID-19 [Recovered/Resolved]
  - Pain [Unknown]
  - Night sweats [Unknown]
  - Acne [Unknown]
  - Diarrhoea [Recovering/Resolving]
  - Headache [Unknown]
  - Fatigue [Unknown]

NARRATIVE: CASE EVENT DATE: 20210601
